FAERS Safety Report 8049901-6 (Version None)
Quarter: 2012Q1

REPORT INFORMATION
  Report Type: 
  Country: None (occurrence: None)
  Receive Date: 20120117
  Receipt Date: 20120116
  Transmission Date: 20120608
  Serious: No
  Sender: FDA-Public Use
  Company Number: US-PFIZER INC-2012012810

PATIENT
  Sex: Female
  Weight: 72.562 kg

DRUGS (3)
  1. CHANTIX [Suspect]
     Indication: SMOKING CESSATION THERAPY
     Dosage: 0.5 MG, DAILY
     Route: 048
     Dates: start: 20120103
  2. CHANTIX [Suspect]
     Dosage: 1 MG, 2X/DAY
     Route: 048
     Dates: start: 20120101
  3. HYDROXYZINE HYDROCHLORIDE [Concomitant]
     Indication: PRURITUS
     Dosage: 50 MG, AS NEEDED TWO TIMES A DAY

REACTIONS (11)
  - RASH [None]
  - NAUSEA [None]
  - CONSTIPATION [None]
  - RESTLESSNESS [None]
  - VOMITING [None]
  - INSOMNIA [None]
  - ABNORMAL DREAMS [None]
  - WEIGHT INCREASED [None]
  - SCREAMING [None]
  - NERVOUSNESS [None]
  - ANGER [None]
